FAERS Safety Report 21650602 (Version 1)
Quarter: 2022Q4

REPORT INFORMATION
  Report Type: Spontaneous
  Country: None (occurrence: US)
  Receive Date: 20221128
  Receipt Date: 20221128
  Transmission Date: 20230113
  Serious: No
  Sender: FDA-Public Use
  Company Number: US-Xttrium Laboratories, Inc-2135293

PATIENT
  Sex: Female

DRUGS (1)
  1. SCRUB CARE EXIDINE -4 CHG [Suspect]
     Active Substance: CHLORHEXIDINE GLUCONATE
     Route: 003

REACTIONS (2)
  - Eye injury [Recovering/Resolving]
  - Eyelid injury [Recovering/Resolving]

NARRATIVE: CASE EVENT DATE: 20221118
